FAERS Safety Report 6637012-3 (Version None)
Quarter: 2010Q1

REPORT INFORMATION
  Report Type: 
  Country: None (occurrence: None)
  Receive Date: 20100301
  Receipt Date: 20090317
  Transmission Date: 20100710
  Serious: Yes (Hospitalization, Other)
  Sender: FDA-Public Use
  Company Number: RB-11982-2009

PATIENT
  Age: 24 Year
  Sex: Female

DRUGS (2)
  1. XANAX [Suspect]
     Indication: DRUG USE FOR UNKNOWN INDICATION
     Dosage: 90 TABLETS TAKEN ON 16-MAR-2009
  2. SUBOXONE [Suspect]
     Indication: DRUG DEPENDENCE
     Dosage: 8 MG BID SUBLINGUAL
     Route: 060
     Dates: start: 20090102

REACTIONS (2)
  - OVERDOSE [None]
  - SUICIDE ATTEMPT [None]
